FAERS Safety Report 8936485 (Version 1)
Quarter: 2012Q4

REPORT INFORMATION
  Report Type: 
  Country: MX (occurrence: MX)
  Receive Date: 20121130
  Receipt Date: 20121130
  Transmission Date: 20130627
  Serious: Yes (Other)
  Sender: FDA-Public Use
  Company Number: MX-PFIZER INC-2012217816

PATIENT
  Age: 45 Year
  Sex: Male
  Weight: 73 kg

DRUGS (3)
  1. VIAGRA [Suspect]
     Indication: PREMATURE EJACULATION
     Dosage: 1/4 of 100 mg tablet
     Route: 048
  2. PRAVASTATIN [Concomitant]
     Indication: HYPERLIPIDEMIA
  3. BEZAFIBRATE [Concomitant]
     Indication: HYPERLIPIDEMIA

REACTIONS (8)
  - Vision blurred [Unknown]
  - Eye colour change [Unknown]
  - Blood triglycerides increased [Unknown]
  - Erythema [Unknown]
  - Erection increased [Unknown]
  - Ejaculation delayed [Unknown]
  - Headache [Unknown]
  - Off label use [Unknown]
